FAERS Safety Report 4904354-9 (Version None)
Quarter: 2006Q1

REPORT INFORMATION
  Report Type: 
  Country: None (occurrence: None)
  Receive Date: 20060208
  Receipt Date: 20050825
  Transmission Date: 20060701
  Serious: No
  Sender: FDA-Public Use
  Company Number: US-GLAXOSMITHKLINE-A0571846A

PATIENT
  Age: 39 Year
  Sex: Male

DRUGS (1)
  1. PAXIL [Suspect]
     Dosage: 40MG PER DAY
     Route: 048
     Dates: start: 20020401

REACTIONS (6)
  - ANXIETY [None]
  - DRUG INEFFECTIVE [None]
  - ELEVATED MOOD [None]
  - ERYTHEMA [None]
  - FEELING ABNORMAL [None]
  - PHARMACEUTICAL PRODUCT COMPLAINT [None]
